FAERS Safety Report 8340003-8 (Version None)
Quarter: 2012Q2

REPORT INFORMATION
  Report Type: 
  Country: None (occurrence: None)
  Receive Date: 20120507
  Receipt Date: 20120504
  Transmission Date: 20120825
  Serious: Yes (Other)
  Sender: FDA-Public Use
  Company Number: US-PFIZER INC-2012110011

PATIENT
  Sex: Female
  Weight: 33.56 kg

DRUGS (5)
  1. CHANTIX [Suspect]
     Dosage: UNK
     Route: 048
     Dates: start: 20120101
  2. CHANTIX [Suspect]
     Indication: SMOKING CESSATION THERAPY
     Dosage: 0.5 MG, DAILY
     Route: 048
     Dates: start: 20120101, end: 20120101
  3. BUTALBITAL/CAFFEINE/CODEINE PHOSPHATE/PARACETAMOL [Suspect]
     Indication: HEADACHE
     Dosage: ^30MG^, AS NEEDED
  4. BUTALBITAL/CAFFEINE/CODEINE PHOSPHATE/PARACETAMOL [Suspect]
     Dosage: UNK
  5. TEMAZEPAM [Concomitant]
     Indication: SLEEP DISORDER
     Dosage: 30 MG, DAILY

REACTIONS (3)
  - BLOOD PRESSURE INCREASED [None]
  - MIGRAINE [None]
  - HYPERTENSION [None]
